FAERS Safety Report 7086869-3 (Version None)
Quarter: 2010Q4

REPORT INFORMATION
  Report Type: 
  Country: None (occurrence: None)
  Receive Date: 20101105
  Receipt Date: 20101025
  Transmission Date: 20110411
  Serious: Yes (Other)
  Sender: FDA-Public Use
  Company Number: US-AMGEN-QUU440174

PATIENT

DRUGS (4)
  1. NPLATE [Suspect]
     Indication: IDIOPATHIC THROMBOCYTOPENIC PURPURA
     Dosage: 100 A?G, UNK
     Dates: start: 20090807, end: 20100331
  2. NPLATE [Suspect]
     Dates: start: 20090807, end: 20100321
  3. NPLATE [Suspect]
     Dates: start: 20090807, end: 20100321
  4. IMMU-G [Concomitant]
     Dosage: UNK UNK, UNK
     Dates: start: 20070705

REACTIONS (1)
  - DRUG INEFFECTIVE [None]
